FAERS Safety Report 8003387-6 (Version None)
Quarter: 2011Q4

REPORT INFORMATION
  Report Type: 
  Country: None (occurrence: None)
  Receive Date: 20111222
  Receipt Date: 20111205
  Transmission Date: 20120403
  Serious: Yes (Hospitalization)
  Sender: FDA-Public Use
  Company Number: GB-PFIZER INC-K201100531

PATIENT
  Age: 88 Year
  Sex: Female

DRUGS (6)
  1. OMEPRAZOLE [Concomitant]
     Indication: PRODUCT USED FOR UNKNOWN INDICATION
     Dosage: 20 MG, 1X/DAY
     Route: 048
  2. ALTACE [Suspect]
     Indication: PRODUCT USED FOR UNKNOWN INDICATION
     Dosage: 10 MG, 1X/DAY
     Route: 048
     Dates: end: 20110323
  3. SIMVASTATIN [Concomitant]
     Indication: PRODUCT USED FOR UNKNOWN INDICATION
     Dosage: 20 MG, 1X/DAY
     Route: 048
  4. DOXAZOSIN [Concomitant]
     Dosage: 4 MG, 1X/DAY
     Route: 048
  5. LEVOTHYROXINE [Concomitant]
     Dosage: 125 UG, 1X/DAY
     Route: 048
  6. ATENOLOL [Concomitant]
     Dosage: 50 MG, 1X/DAY
     Route: 048

REACTIONS (3)
  - BLOOD POTASSIUM INCREASED [None]
  - RENAL FAILURE ACUTE [None]
  - ESCHERICHIA URINARY TRACT INFECTION [None]
